FAERS Safety Report 9858386 (Version 1)
Quarter: 2014Q1

REPORT INFORMATION
  Report Type: Spontaneous
  Country: US (occurrence: None)
  Receive Date: 20140130
  Receipt Date: 20140130
  Transmission Date: 20141002
  Serious: Yes (Other)
  Sender: FDA-Public Use
  Company Number: None

PATIENT
  Age: 34 Year
  Sex: Male
  Weight: 112.49 kg

DRUGS (1)
  1. BUPROPION HCL [Suspect]
     Indication: DEPRESSION
     Dosage: TAKEN BY MOUTH
     Dates: start: 20140120, end: 20140121

REACTIONS (6)
  - Abdominal distension [None]
  - Discomfort [None]
  - Diarrhoea [None]
  - Job dissatisfaction [None]
  - Weight decreased [None]
  - Product substitution issue [None]
